FAERS Safety Report 8243387-4 (Version None)
Quarter: 2012Q1

REPORT INFORMATION
  Report Type: 
  Country: None (occurrence: None)
  Receive Date: 20120329
  Receipt Date: 20120323
  Transmission Date: 20120608
  Serious: No
  Sender: FDA-Public Use
  Company Number: US-PFIZER INC-2012077107

PATIENT
  Sex: Female

DRUGS (1)
  1. VFEND [Suspect]
     Indication: MYELODYSPLASTIC SYNDROME
     Dosage: 200 MG, 2X/DAY
     Dates: start: 20111129

REACTIONS (1)
  - LIVER FUNCTION TEST ABNORMAL [None]
